FAERS Safety Report 5281087-3 (Version None)
Quarter: 2007Q1

REPORT INFORMATION
  Report Type: 
  Country: None (occurrence: None)
  Receive Date: 20070323
  Receipt Date: 20070320
  Transmission Date: 20070707
  Serious: Yes (Life-Threatening)
  Sender: FDA-Public Use
  Company Number: 2006S1000158

PATIENT
  Age: 46 Day
  Sex: Male

DRUGS (2)
  1. NITRIC OXIDE [Suspect]
     Indication: LUNG DISORDER
     Dosage: 5 PPM; CONT INH
     Route: 055
     Dates: start: 20060414, end: 20060507
  2. NITRIC OXIDE [Suspect]
     Indication: PROPHYLAXIS
     Dosage: 5 PPM; CONT INH
     Route: 055
     Dates: start: 20060414, end: 20060507

REACTIONS (2)
  - HYPOXIA [None]
  - NECROTISING ENTEROCOLITIS NEONATAL [None]
